FAERS Safety Report 4491368-9 (Version None)
Quarter: 2004Q4

REPORT INFORMATION
  Report Type: 
  Country: None (occurrence: None)
  Receive Date: 20041101
  Receipt Date: 20041101
  Transmission Date: 20050328
  Serious: Yes (Other)
  Sender: FDA-Public Use
  Company Number: None

PATIENT
  Age: 43 Year
  Sex: Female
  Weight: 58.9676 kg

DRUGS (3)
  1. REMERON [Suspect]
     Indication: BIPOLAR I DISORDER
     Dosage: 1 HS
     Dates: start: 19980101
  2. KLONOPIN [Suspect]
     Dosage: 1 Q AM2 HS
     Dates: start: 19980101
  3. TEGRETOL [Concomitant]

REACTIONS (3)
  - ABDOMINAL DISCOMFORT [None]
  - DRUG EFFECT DECREASED [None]
  - PHARMACEUTICAL PRODUCT COMPLAINT [None]
